FAERS Safety Report 4505789-9 (Version None)
Quarter: 2004Q4

REPORT INFORMATION
  Report Type: 
  Country: None (occurrence: None)
  Receive Date: 20041119
  Receipt Date: 20041110
  Transmission Date: 20050328
  Serious: Yes (Hospitalization)
  Sender: FDA-Public Use
  Company Number: FR-BRISTOL-MYERS SQUIBB COMPANY-12760963

PATIENT
  Age: 70 Year
  Sex: Female
  Weight: 57 kg

DRUGS (6)
  1. BRISTOPEN CAPS 500 MG [Suspect]
     Route: 048
     Dates: start: 20040902, end: 20040918
  2. FUNGIZONE [Suspect]
     Route: 048
     Dates: start: 20040902, end: 20040918
  3. FLAMMAZINE [Suspect]
     Route: 061
     Dates: start: 20040902, end: 20040918
  4. ADVIL [Suspect]
     Route: 048
  5. SOLUPRED [Suspect]
     Route: 048
     Dates: start: 20040902, end: 20040918
  6. RIFADIN [Suspect]
     Route: 048
     Dates: start: 20040902, end: 20040918

REACTIONS (5)
  - ALANINE AMINOTRANSFERASE INCREASED [None]
  - ANAEMIA [None]
  - ASPARTATE AMINOTRANSFERASE INCREASED [None]
  - GAMMA-GLUTAMYLTRANSFERASE INCREASED [None]
  - NEPHRITIS INTERSTITIAL [None]
